FAERS Safety Report 7989452-8 (Version None)
Quarter: 2011Q4

REPORT INFORMATION
  Report Type: 
  Country: None (occurrence: None)
  Receive Date: 20111219
  Receipt Date: 20111208
  Transmission Date: 20120403
  Serious: Yes (Hospitalization)
  Sender: FDA-Public Use
  Company Number: JP-JNJFOC-20111012054

PATIENT
  Sex: Female
  Weight: 60 kg

DRUGS (7)
  1. ISONIAZID [Concomitant]
     Indication: PROPHYLAXIS
     Route: 048
  2. REMICADE [Suspect]
     Indication: RHEUMATOID ARTHRITIS
     Route: 042
     Dates: start: 20110926
  3. FOLIC ACID [Concomitant]
     Indication: PROPHYLAXIS
     Route: 048
     Dates: end: 20111008
  4. METHOTREXATE [Suspect]
     Indication: RHEUMATOID ARTHRITIS
     Route: 048
     Dates: start: 20020101, end: 20111006
  5. REMICADE [Suspect]
     Route: 042
     Dates: start: 20110810
  6. REMICADE [Suspect]
     Route: 042
     Dates: start: 20110829
  7. PYDOXAL [Concomitant]
     Indication: PROPHYLAXIS
     Route: 048

REACTIONS (1)
  - PNEUMOCYSTIS JIROVECI PNEUMONIA [None]
